FAERS Safety Report 24094096 (Version 1)
Quarter: 2024Q3

REPORT INFORMATION
  Report Type: Spontaneous
  Country: US (occurrence: US)
  Receive Date: 20240716
  Receipt Date: 20240716
  Transmission Date: 20241016
  Serious: No
  Sender: TEVA
  Company Number: US-TEVA-VS-3219557

PATIENT
  Sex: Female

DRUGS (10)
  1. PENICILLIN [Suspect]
     Active Substance: PENICILLIN
     Indication: Product used for unknown indication
     Dosage: UNKNOWN
     Route: 065
  2. OZEMPIC [Concomitant]
     Active Substance: SEMAGLUTIDE
  3. CELEBREX [Concomitant]
     Active Substance: CELECOXIB
  4. CARVEDILOL [Concomitant]
     Active Substance: CARVEDILOL
  5. AMLODIPINE BESYLATE [Concomitant]
     Active Substance: AMLODIPINE BESYLATE
  6. GABAPENTIN [Concomitant]
     Active Substance: GABAPENTIN
  7. FARXIGA [Concomitant]
     Active Substance: DAPAGLIFLOZIN PROPANEDIOL
  8. LEVOTHYROXINE [Concomitant]
     Active Substance: LEVOTHYROXINE\LEVOTHYROXINE SODIUM
  9. PLAVIX [Concomitant]
     Active Substance: CLOPIDOGREL BISULFATE
  10. LIPITOR [Concomitant]
     Active Substance: ATORVASTATIN CALCIUM

REACTIONS (1)
  - Urticaria [Unknown]
